FAERS Safety Report 17015078 (Version 1)
Quarter: 2019Q4

REPORT INFORMATION
  Report Type: Spontaneous
  Country: US (occurrence: US)
  Receive Date: 20191108
  Receipt Date: 20191108
  Transmission Date: 20200122
  Serious: Yes (Disabling)
  Sender: FDA-Public Use
  Company Number: None

PATIENT
  Age: 70 Year
  Sex: Female
  Weight: 81 kg

DRUGS (1)
  1. LOSARTAN. [Suspect]
     Active Substance: LOSARTAN
     Indication: HYPERTENSION
     Route: 048

REACTIONS (8)
  - Impaired self-care [None]
  - Dysgraphia [None]
  - Asthenia [None]
  - Dysstasia [None]
  - Lethargy [None]
  - Gait inability [None]
  - Hyporeflexia [None]
  - Muscle disorder [None]

NARRATIVE: CASE EVENT DATE: 20190619
